FAERS Safety Report 12294771 (Version 1)
Quarter: 2016Q2

REPORT INFORMATION
  Report Type: Spontaneous
  Country: US (occurrence: None)
  Receive Date: 20160421
  Receipt Date: 20160421
  Transmission Date: 20160815
  Serious: No
  Sender: FDA-Public Use
  Company Number: None

PATIENT
  Age: 60 Year
  Sex: Female
  Weight: 70.31 kg

DRUGS (1)
  1. CLARITHROMYCIN TAB 500MG AUROBINDO [Suspect]
     Active Substance: CLARITHROMYCIN
     Indication: BRONCHITIS
     Route: 048
     Dates: start: 20160414, end: 20160418

REACTIONS (12)
  - Nausea [None]
  - Dizziness [None]
  - Dysgeusia [None]
  - Pyrexia [None]
  - Dyspnoea [None]
  - Eye irritation [None]
  - Pain of skin [None]
  - Diarrhoea [None]
  - Abdominal pain upper [None]
  - Headache [None]
  - Muscular weakness [None]
  - Decreased appetite [None]

NARRATIVE: CASE EVENT DATE: 20160415
